FAERS Safety Report 10241156 (Version 1)
Quarter: 2014Q2

REPORT INFORMATION
  Report Type: Spontaneous
  Country: US (occurrence: US)
  Receive Date: 20140617
  Receipt Date: 20140617
  Transmission Date: 20141212
  Serious: No
  Sender: FDA-Public Use
  Company Number: US-PFIZER INC-2014164415

PATIENT
  Age: 50 Year
  Sex: Male

DRUGS (4)
  1. HYDROXYZINE PAMOATE [Suspect]
     Dosage: UNK
  2. METOPROLOL TARTRATE [Interacting]
     Indication: HYPERTENSION
     Dosage: UNK
  3. NIFEDIPINE [Concomitant]
     Indication: HYPERTENSION
     Dosage: UNK
  4. BUSPIRONE [Concomitant]
     Indication: ANXIETY
     Dosage: UNK

REACTIONS (1)
  - Drug interaction [Unknown]
